FAERS Safety Report 26126292 (Version 1)
Quarter: 2025Q4

REPORT INFORMATION
  Report Type: Spontaneous
  Country: EU (occurrence: EU)
  Receive Date: 20251205
  Receipt Date: 20251205
  Transmission Date: 20260117
  Serious: Yes (Hospitalization, Other)
  Sender: BAXTER
  Company Number: None

PATIENT
  Age: 15 Year
  Sex: Male

DRUGS (10)
  1. IFOSFAMIDE [Suspect]
     Active Substance: IFOSFAMIDE
     Indication: Rhabdomyosarcoma
     Dosage: 4800 MG, 1 CYCLICAL (INFUSION)
     Route: 042
     Dates: start: 20250611, end: 20250716
  2. IFOSFAMIDE [Suspect]
     Active Substance: IFOSFAMIDE
     Dosage: 4750 MG, 1 CYCLICAL (INFUSION)
     Route: 042
     Dates: start: 20250723, end: 20251016
  3. IFOSFAMIDE [Suspect]
     Active Substance: IFOSFAMIDE
     Dosage: 4650 MG, 1 CYCLICAL (INFUSION)
     Route: 042
     Dates: start: 20251105, end: 20251105
  4. MESNA [Suspect]
     Active Substance: MESNA
     Indication: Rhabdomyosarcoma
     Dosage: 5760 MG, 1 CYCLICAL (INJECTION)
     Route: 042
     Dates: start: 20250611, end: 20250814
  5. MESNA [Suspect]
     Active Substance: MESNA
     Dosage: 5720 MG, 1 CYCLICAL (INJECTION)
     Route: 042
     Dates: start: 20250903, end: 20251016
  6. MESNA [Suspect]
     Active Substance: MESNA
     Dosage: 5580 MG (INJECTION)
     Route: 042
     Dates: start: 20251105
  7. COSMEGEN [Concomitant]
     Active Substance: DACTINOMYCIN
     Indication: Rhabdomyosarcoma
     Dosage: 2000 UG (0.5 MG, POWDER FOR INJECTABLE SOLUTION)
     Route: 042
     Dates: start: 20250611, end: 20251105
  8. VINCRISTINE [Concomitant]
     Active Substance: VINCRISTINE
     Indication: Rhabdomyosarcoma
     Dosage: 2 MG (2 MG/2 ML, INJECTABLE SOLUTION)
     Route: 042
     Dates: start: 20250611
  9. DOXORUBICIN [Concomitant]
     Active Substance: DOXORUBICIN
     Indication: Rhabdomyosarcoma
     Dosage: 48 MG, 1 CYCLICAL
     Route: 042
     Dates: start: 20250611, end: 20250716
  10. DOXORUBICIN [Concomitant]
     Active Substance: DOXORUBICIN
     Dosage: 47.5 MG, 1 CYCLICAL
     Route: 042
     Dates: start: 20250723, end: 20250814

REACTIONS (1)
  - Encephalopathy [Recovering/Resolving]

NARRATIVE: CASE EVENT DATE: 20251106
